FAERS Safety Report 9043103 (Version 2)
Quarter: 2013Q1

REPORT INFORMATION
  Report Type: Report from Study
  Country: US (occurrence: US)
  Receive Date: 20130129
  Receipt Date: 20130318
  Transmission Date: 20140127
  Serious: Yes (Hospitalization, Other)
  Sender: FDA-Public Use
  Company Number: US-ABBOTT-12P-163-0902445-00

PATIENT
  Age: 34 Year
  Sex: Female

DRUGS (7)
  1. HUMIRA [Suspect]
     Indication: CROHN^S DISEASE
     Dates: start: 20120102, end: 20120102
  2. HUMIRA [Suspect]
     Dates: start: 20120116, end: 20120116
  3. HUMIRA [Suspect]
     Dates: end: 201208
  4. HUMIRA [Suspect]
     Dates: start: 20121015
  5. PENTASA [Suspect]
     Indication: CROHN^S DISEASE
     Route: 048
  6. PREDNISONE [Concomitant]
     Indication: CROHN^S DISEASE
     Route: 048
  7. LEXAPRO [Concomitant]
     Indication: DEPRESSION
     Route: 048

REACTIONS (11)
  - Amniotic fluid volume decreased [Recovered/Resolved]
  - Hypertension [Recovered/Resolved]
  - Injection site pain [Recovered/Resolved]
  - Injection site pain [Not Recovered/Not Resolved]
  - Pain in extremity [Not Recovered/Not Resolved]
  - Injection site warmth [Unknown]
  - Nasopharyngitis [Not Recovered/Not Resolved]
  - Respiratory tract congestion [Not Recovered/Not Resolved]
  - Fatigue [Not Recovered/Not Resolved]
  - Cough [Not Recovered/Not Resolved]
  - Drug ineffective [Unknown]
